FAERS Safety Report 9352522 (Version 2)
Quarter: 2013Q2

REPORT INFORMATION
  Report Type: Spontaneous
  Country: JP (occurrence: JP)
  Receive Date: 20130617
  Receipt Date: 20130619
  Transmission Date: 20140414
  Serious: Yes (Other)
  Sender: FDA-Public Use
  Company Number: JP-OTSUKA-JP-2013-12205

PATIENT
  Sex: Male

DRUGS (2)
  1. SAMSCA [Suspect]
     Indication: CARDIAC FAILURE
     Dosage: 7.5 MG MILLIGRAM(S), DAILY DOSE
     Route: 048
  2. CRESTOR [Suspect]
     Dosage: UNK
     Route: 048

REACTIONS (1)
  - Hypersensitivity [Unknown]
